FAERS Safety Report 25169761 (Version 2)
Quarter: 2025Q2

REPORT INFORMATION
  Report Type: Spontaneous
  Country: US (occurrence: US)
  Receive Date: 20250407
  Receipt Date: 20250505
  Transmission Date: 20250717
  Serious: Yes (Hospitalization, Other)
  Sender: BAYER HEALTHCARE LLC
  Company Number: US-BAYER-2025A043420

PATIENT
  Age: 63 Year
  Sex: Female

DRUGS (15)
  1. ASPIRIN [Suspect]
     Active Substance: ASPIRIN
  2. MONTELUKAST [Concomitant]
     Active Substance: MONTELUKAST
  3. SIMVASTATIN [Concomitant]
     Active Substance: SIMVASTATIN
  4. LEVOTHYROXINE [Concomitant]
     Active Substance: LEVOTHYROXINE
  5. GABAPENTIN [Concomitant]
     Active Substance: GABAPENTIN
  6. FOLIC ACID [Concomitant]
     Active Substance: FOLIC ACID
  7. POTASSIUM CHLORIDE [Concomitant]
     Active Substance: POTASSIUM CHLORIDE
  8. CALCIUM CITRATE [Concomitant]
     Active Substance: CALCIUM CITRATE
  9. BUMETANIDE [Concomitant]
     Active Substance: BUMETANIDE
  10. CALCIUM CARBONATE [Concomitant]
     Active Substance: CALCIUM CARBONATE
  11. MIDODRINE [Concomitant]
     Active Substance: MIDODRINE
  12. THIAMINE [Concomitant]
     Active Substance: THIAMINE
  13. PANTOPRAZOLE [Concomitant]
     Active Substance: PANTOPRAZOLE
  14. UMECLIDINIUM BROMIDE\VILANTEROL TRIFENATATE [Concomitant]
     Active Substance: UMECLIDINIUM BROMIDE\VILANTEROL TRIFENATATE
  15. URSODIOL [Concomitant]
     Active Substance: URSODIOL

REACTIONS (3)
  - Haemorrhoidal haemorrhage [Recovered/Resolved]
  - Anaemia [None]
  - Large intestinal haemorrhage [None]
